FAERS Safety Report 4439446-4 (Version None)
Quarter: 2004Q3

REPORT INFORMATION
  Report Type: 
  Country: None (occurrence: None)
  Receive Date: 20040728
  Receipt Date: 20040310
  Transmission Date: 20050211
  Serious: No
  Sender: FDA-Public Use
  Company Number: USA040361624

PATIENT
  Age: 11 Year
  Sex: Male
  Weight: 30 kg

DRUGS (2)
  1. STRATTERA [Suspect]
     Indication: DISTURBANCE IN ATTENTION
     Dosage: 25 MG AT BEDTIME
     Dates: start: 20040229
  2. CONCERTA [Concomitant]

REACTIONS (4)
  - DYSLEXIA [None]
  - FATIGUE [None]
  - PANIC REACTION [None]
  - SOMNOLENCE [None]
